FAERS Safety Report 6826078-3 (Version None)
Quarter: 2010Q3

REPORT INFORMATION
  Report Type: 
  Country: None (occurrence: None)
  Receive Date: 20100709
  Receipt Date: 20100630
  Transmission Date: 20110219
  Serious: Yes (Other)
  Sender: FDA-Public Use
  Company Number: FR-ASTRAZENECA-2010SE30943

PATIENT
  Age: 78 Year
  Sex: Female

DRUGS (8)
  1. ATACAND [Suspect]
     Route: 048
     Dates: start: 20090101
  2. CRESTOR [Suspect]
     Route: 048
     Dates: start: 20090101
  3. HYPERIUM [Suspect]
     Route: 065
     Dates: start: 20100301
  4. LEVOTHYROXINE SODIUM [Concomitant]
  5. LASIX [Concomitant]
  6. CORDARONE [Concomitant]
  7. PREVISCAN [Concomitant]
  8. ALDACTONE [Concomitant]

REACTIONS (1)
  - RENAL FAILURE [None]
